FAERS Safety Report 9541766 (Version 3)
Quarter: 2013Q4

REPORT INFORMATION
  Report Type: Spontaneous
  Country: ES (occurrence: ES)
  Receive Date: 20130923
  Receipt Date: 20131025
  Transmission Date: 20140711
  Serious: Yes (Life-Threatening, Other)
  Sender: FDA-Public Use
  Company Number: ES-UCBSA-098188

PATIENT
  Age: 18 Year
  Sex: Female

DRUGS (1)
  1. VIMPAT [Suspect]
     Indication: EPILEPSY
     Dosage: DOSE: 550 MG DAILY
     Dates: start: 2010, end: 201309

REACTIONS (6)
  - Pancreatitis [Recovered/Resolved]
  - Pseudocyst [Recovered/Resolved]
  - Thrombosis [Recovered/Resolved]
  - Renal infarct [Recovered/Resolved]
  - Convulsion [Recovered/Resolved]
  - Overdose [Unknown]
